FAERS Safety Report 16692822 (Version 1)
Quarter: 2019Q3

REPORT INFORMATION
  Report Type: Spontaneous
  Country: US (occurrence: US)
  Receive Date: 20190812
  Receipt Date: 20190812
  Transmission Date: 20191004
  Serious: Yes (Other)
  Sender: FDA-Public Use
  Company Number: US-PROCTER_AND_GAMBLE-GS19082804

PATIENT

DRUGS (1)
  1. VICKS NOS [Suspect]
     Active Substance: MENTHOL OR OXYMETAZOLINE HYDROCHLORIDE OR PHENYLEPHRINE HYDROCHLORIDE
     Route: 048

REACTIONS (2)
  - Feeling abnormal [Unknown]
  - Loss of consciousness [Recovered/Resolved]
